FAERS Safety Report 7543162-X (Version None)
Quarter: 2011Q2

REPORT INFORMATION
  Report Type: 
  Country: None (occurrence: None)
  Receive Date: 20110613
  Receipt Date: 20110607
  Transmission Date: 20111010
  Serious: Yes (Hospitalization)
  Sender: FDA-Public Use
  Company Number: US-MERCK-1106USA00876

PATIENT
  Sex: Male

DRUGS (1)
  1. SINGULAIR [Suspect]
     Indication: ASTHMA
     Route: 048
     Dates: start: 20060101

REACTIONS (4)
  - DIABETES MELLITUS [None]
  - DYSPHAGIA [None]
  - SENSATION OF FOREIGN BODY [None]
  - GALLBLADDER DISORDER [None]
